FAERS Safety Report 25956946 (Version 1)
Quarter: 2025Q4

REPORT INFORMATION
  Report Type: Report from Study
  Country: US (occurrence: US)
  Receive Date: 20251024
  Receipt Date: 20251024
  Transmission Date: 20260118
  Serious: Yes (Life-Threatening, Hospitalization)
  Sender: MYLAN
  Company Number: US-MYLANLABS-2025M1088915

PATIENT
  Age: 27 Year
  Sex: Male

DRUGS (10)
  1. FENTANYL [Suspect]
     Active Substance: FENTANYL
     Indication: Intracranial pressure increased
     Dosage: UNK (DRIP)
  2. FENTANYL [Suspect]
     Active Substance: FENTANYL
     Dosage: 200 MICROGRAM, QH (DRIP)
  3. VERSED [Suspect]
     Active Substance: MIDAZOLAM HYDROCHLORIDE
     Indication: Intracranial pressure increased
     Dosage: UNK (DRIP)
  4. VERSED [Suspect]
     Active Substance: MIDAZOLAM HYDROCHLORIDE
     Dosage: 15 MILLIGRAM, QH (DRIP)
  5. PROPOFOL [Suspect]
     Active Substance: PROPOFOL
     Indication: Intracranial pressure increased
     Dosage: UNK (DRIP)
  6. PROPOFOL [Suspect]
     Active Substance: PROPOFOL
     Dosage: 100 MICROGRAM/KILOGRAM, QMINUTE (DRIP)
  7. SODIUM CHLORIDE [Suspect]
     Active Substance: SODIUM CHLORIDE
     Indication: Intracranial pressure increased
     Dosage: 100 MILLILITER, QH (DRIP; INTERMITTENT BOLUSES)
  8. PENTOBARBITAL [Suspect]
     Active Substance: PENTOBARBITAL
     Indication: Intracranial pressure increased
     Dosage: UNK (LOW-DOSE) INFUSION
  9. ATROPINE [Suspect]
     Active Substance: ATROPINE
     Indication: Bradycardia
     Dosage: UNK (INTERMITTENT ATROPINE PUSHES)
  10. ATROPINE [Suspect]
     Active Substance: ATROPINE
     Indication: Shock

REACTIONS (2)
  - Drug ineffective for unapproved indication [Unknown]
  - Off label use [Unknown]
